FAERS Safety Report 5407649-8 (Version None)
Quarter: 2007Q3

REPORT INFORMATION
  Report Type: 
  Country: None (occurrence: None)
  Receive Date: 20070807
  Receipt Date: 20070726
  Transmission Date: 20080115
  Serious: Yes (Hospitalization)
  Sender: FDA-Public Use
  Company Number: US-PFIZER INC-2007062204

PATIENT
  Age: 44 Year
  Sex: Female

DRUGS (5)
  1. RELPAX [Suspect]
  2. AMERGE [Suspect]
     Indication: MIGRAINE
     Route: 048
  3. IMITREX [Suspect]
     Indication: MIGRAINE
     Route: 048
  4. AXERT [Suspect]
     Indication: MIGRAINE
  5. FROVA [Suspect]

REACTIONS (2)
  - ARTERIOSPASM CORONARY [None]
  - CARDIOMYOPATHY [None]
